FAERS Safety Report 4353928-5 (Version None)
Quarter: 2004Q2

REPORT INFORMATION
  Report Type: 
  Country: None (occurrence: None)
  Receive Date: 20040506
  Receipt Date: 20040115
  Transmission Date: 20050107
  Serious: No
  Sender: FDA-Public Use
  Company Number: US-GLAXOSMITHKLINE-A0493482A

PATIENT
  Age: 32 Year
  Sex: Female

DRUGS (2)
  1. AVANDAMET [Suspect]
     Dosage: 2TAB PER DAY
     Route: 048
     Dates: start: 20030901
  2. ADVAIR DISKUS 100/50 [Concomitant]

REACTIONS (1)
  - MENSTRUAL DISORDER [None]
